FAERS Safety Report 6933207-X (Version None)
Quarter: 2010Q3

REPORT INFORMATION
  Report Type: 
  Country: None (occurrence: None)
  Receive Date: 20100820
  Receipt Date: 20100816
  Transmission Date: 20110219
  Serious: Yes (Other)
  Sender: FDA-Public Use
  Company Number: US-ASTRAZENECA-2007UW19286

PATIENT
  Age: 12692 Day
  Sex: Female
  Weight: 99.8 kg

DRUGS (17)
  1. SEROQUEL [Suspect]
     Indication: BIPOLAR DISORDER
     Route: 048
     Dates: start: 20030101, end: 20070501
  2. SEROQUEL [Suspect]
     Indication: SLEEP DISORDER
     Route: 048
     Dates: start: 20030101, end: 20070501
  3. SEROQUEL [Suspect]
     Route: 048
     Dates: start: 20050601
  4. SEROQUEL [Suspect]
     Route: 048
     Dates: start: 20050601
  5. SEROQUEL [Suspect]
     Dosage: 150 MG TO 300 MG
     Route: 048
     Dates: start: 20050911, end: 20070125
  6. SEROQUEL [Suspect]
     Dosage: 150 MG TO 300 MG
     Route: 048
     Dates: start: 20050911, end: 20070125
  7. TOPAMAX [Concomitant]
     Dates: start: 20070109
  8. LEXAPRO [Concomitant]
     Dates: start: 20070109
  9. ABILIFY [Concomitant]
     Dates: start: 20050601, end: 20050801
  10. ABILIFY [Concomitant]
     Dates: start: 20070109
  11. TRAZODONE HCL [Concomitant]
     Dates: start: 20070109
  12. XANAX [Concomitant]
     Indication: PANIC ATTACK
     Dates: start: 20031102
  13. XANAX [Concomitant]
     Indication: ANXIETY
     Dates: start: 20031102
  14. SYNTHROID [Concomitant]
     Indication: GOITRE
     Dates: start: 20031102
  15. SYNTHROID [Concomitant]
     Indication: HYPOTHYROIDISM
     Dates: start: 20031102
  16. ACETAMINOPHEN AND HYDROCODONE BITARTRATE [Concomitant]
     Dosage: STRENGTH - 5 - 500 MG, FOUR HRLY, AS NEEDED
     Route: 048
  17. RESTORIL [Concomitant]
     Dates: start: 20050601

REACTIONS (6)
  - DIABETIC KETOACIDOSIS [None]
  - DIABETIC NEUROPATHY [None]
  - HYPERGLYCAEMIA [None]
  - HYPOGLYCAEMIA [None]
  - OBESITY [None]
  - TYPE 2 DIABETES MELLITUS [None]
